FAERS Safety Report 19838627 (Version 1)
Quarter: 2021Q3

REPORT INFORMATION
  Report Type: Spontaneous
  Country: US (occurrence: US)
  Receive Date: 20210915
  Receipt Date: 20210915
  Transmission Date: 20211014
  Serious: Yes (Life-Threatening, Hospitalization)
  Sender: FDA-Public Use
  Company Number: None

PATIENT
  Age: 78 Year
  Sex: Female

DRUGS (4)
  1. GABAPENTIN. [Concomitant]
     Active Substance: GABAPENTIN
  2. OXYCODONE IR [Concomitant]
     Active Substance: OXYCODONE
  3. TRAZODONE [Suspect]
     Active Substance: TRAZODONE HYDROCHLORIDE
  4. ALPRAZOLAM. [Suspect]
     Active Substance: ALPRAZOLAM

REACTIONS (5)
  - Intestinal perforation [None]
  - Abdominal pain [None]
  - Hypoxia [None]
  - Colitis [None]
  - Lethargy [None]

NARRATIVE: CASE EVENT DATE: 20210517
